FAERS Safety Report 9668129 (Version 1)
Quarter: 2013Q4

REPORT INFORMATION
  Report Type: Report from Study
  Country: CA (occurrence: CA)
  Receive Date: 20131104
  Receipt Date: 20131104
  Transmission Date: 20140711
  Serious: Yes (Hospitalization)
  Sender: FDA-Public Use
  Company Number: CA-ABBVIE-13P-028-1163270-00

PATIENT
  Sex: Female
  Weight: 77.18 kg

DRUGS (8)
  1. HUMIRA [Suspect]
     Indication: CROHN^S DISEASE
     Route: 058
     Dates: start: 20110627, end: 201307
  2. HUMIRA [Suspect]
     Dates: start: 201307, end: 20131015
  3. MORPHINE [Concomitant]
     Indication: PAIN
     Route: 048
  4. HYDROMORPHONE [Concomitant]
     Indication: PAIN
     Route: 048
  5. EFFEXOR [Concomitant]
     Indication: ANXIETY
     Route: 048
  6. IMOVANE [Concomitant]
     Indication: SLEEP DISORDER
     Route: 048
  7. TRAZODONE [Concomitant]
     Indication: ANXIETY
     Route: 048
  8. CLONAZEPAM [Concomitant]
     Indication: ANXIETY
     Route: 048

REACTIONS (7)
  - Jaundice [Unknown]
  - Hospitalisation [Not Recovered/Not Resolved]
  - Cellulitis [Not Recovered/Not Resolved]
  - Alopecia [Unknown]
  - Pruritus [Unknown]
  - Mood altered [Unknown]
  - Feeling abnormal [Unknown]
